FAERS Safety Report 5472499-3 (Version None)
Quarter: 2007Q3

REPORT INFORMATION
  Report Type: 
  Country: None (occurrence: None)
  Receive Date: 20070927
  Receipt Date: 20070920
  Transmission Date: 20080115
  Serious: Yes (Other)
  Sender: FDA-Public Use
  Company Number: TPG2007A00657

PATIENT
  Age: 67 Year
  Sex: Male

DRUGS (7)
  1. COMPETACT (PIOGLITAZONE HYDROCHLORIDE, METFORMIN HYDROCHLORIDE) [Suspect]
     Indication: DIABETES MELLITUS
     Dosage: PIOGLITAZONE 15 MG/METFORMIN 850 MG PER ORAL
     Route: 048
     Dates: start: 20070301
  2. OMEPRAZOLE [Concomitant]
  3. NOVONORM (REPAGLINIDE) [Concomitant]
  4. METOTHEXAL (METOPROLOL TARTRATE) [Concomitant]
  5. DIOVAN HCT [Concomitant]
  6. NITRO-SPRAY (ISOSORBIDE DINITRATE) [Concomitant]
  7. ACETYLSALICYLIC ACID (ACETYLSALICYCLIC ACID) [Concomitant]

REACTIONS (2)
  - BLOOD PRESSURE FLUCTUATION [None]
  - OEDEMA PERIPHERAL [None]
